FAERS Safety Report 7385703-1 (Version None)
Quarter: 2011Q1

REPORT INFORMATION
  Report Type: 
  Country: None (occurrence: None)
  Receive Date: 20110322
  Receipt Date: 20110311
  Transmission Date: 20110831
  Serious: Yes (Hospitalization)
  Sender: FDA-Public Use
  Company Number: 2010SP052257

PATIENT
  Age: 47 Year
  Sex: Female
  Weight: 63 kg

DRUGS (24)
  1. ONDANSETRON [Concomitant]
  2. POLYETHYL GLYC. W/POTAS. CHLOR./SOD. BICARB. [Concomitant]
  3. ABT-888 (INVESTIGATIONAL DRUG) [Suspect]
     Indication: OVARIAN CANCER
     Dosage: 40 MG BID; PO
     Route: 048
     Dates: start: 20100810, end: 20100912
  4. PARACETAMOL [Concomitant]
  5. DEXAMETHASONE [Concomitant]
  6. SENNA ALEXANDRINA [Concomitant]
  7. ZOPICLONE [Concomitant]
  8. AMITRIPTYLINE [Concomitant]
  9. ONANSETRON [Concomitant]
  10. HYOSCINE HBR HYT [Concomitant]
  11. DEXAMETHASONE [Concomitant]
  12. DOMPERIDONE [Concomitant]
  13. GLYCEROL 2.6% [Concomitant]
  14. TEMOZOLOMIDE [Suspect]
     Indication: OVARIAN CANCER
     Dosage: PO
     Route: 048
     Dates: start: 20100810
  15. OMEPRAZOLE [Concomitant]
  16. CYCLIZINE [Concomitant]
  17. POLYETHYL GLYC. W/POTAS. CHLOR./SOD. BICARB. [Concomitant]
  18. MAG-LAX [Concomitant]
  19. ENEMA [Concomitant]
  20. GAVISCON [Concomitant]
  21. IBUPROFEN [Concomitant]
  22. ONDANSETRON [Concomitant]
  23. OMEPRAZOLE [Concomitant]
  24. CYCLIZINE [Concomitant]

REACTIONS (12)
  - NEUTROPHIL COUNT DECREASED [None]
  - DECREASED APPETITE [None]
  - NAUSEA [None]
  - PELVIC PAIN [None]
  - VOMITING [None]
  - BLOOD SODIUM DECREASED [None]
  - TREATMENT NONCOMPLIANCE [None]
  - HYPOKALAEMIA [None]
  - PALPITATIONS [None]
  - FATIGUE [None]
  - DYSPNOEA [None]
  - WHITE BLOOD CELL COUNT DECREASED [None]
